FAERS Safety Report 21590183 (Version 1)
Quarter: 2022Q4

REPORT INFORMATION
  Report Type: Report from Study
  Country: US (occurrence: US)
  Receive Date: 20221114
  Receipt Date: 20221114
  Transmission Date: 20230112
  Serious: Yes (Hospitalization, Other)
  Sender: FDA-Public Use
  Company Number: US-ABBVIE-4196362

PATIENT
  Sex: Male

DRUGS (2)
  1. SKYRIZI [Suspect]
     Active Substance: RISANKIZUMAB-RZAA
     Indication: Psoriatic arthropathy
     Route: 058
     Dates: end: 2022
  2. SKYRIZI [Suspect]
     Active Substance: RISANKIZUMAB-RZAA
     Indication: Psoriasis

REACTIONS (9)
  - Cardiac disorder [Recovering/Resolving]
  - Loss of consciousness [Recovering/Resolving]
  - Joint instability [Unknown]
  - Gait disturbance [Unknown]
  - Cardiomegaly [Unknown]
  - Osteoarthritis [Unknown]
  - Overweight [Unknown]
  - Psoriasis [Unknown]
  - Cardiac dysfunction [Unknown]
